FAERS Safety Report 16609976 (Version 2)
Quarter: 2019Q3

REPORT INFORMATION
  Report Type: Spontaneous
  Country: JP (occurrence: JP)
  Receive Date: 20190722
  Receipt Date: 20190807
  Transmission Date: 20191004
  Serious: Yes (Other)
  Sender: FDA-Public Use
  Company Number: JP-GUERBET-JP-20190103

PATIENT
  Age: 31 Year
  Sex: Female

DRUGS (1)
  1. LIPIODOL [Suspect]
     Active Substance: ETHIODIZED OIL
     Indication: HYSTEROSALPINGOGRAM
     Route: 050

REACTIONS (3)
  - Maternal exposure before pregnancy [Unknown]
  - Urine iodine increased [Recovering/Resolving]
  - Hypothyroidism [Unknown]
